FAERS Safety Report 5020665-3 (Version None)
Quarter: 2006Q2

REPORT INFORMATION
  Report Type: 
  Country: None (occurrence: None)
  Receive Date: 20060602
  Receipt Date: 20060515
  Transmission Date: 20061013
  Serious: Yes (Hospitalization, Other)
  Sender: FDA-Public Use
  Company Number: US200605003778

PATIENT
  Sex: Female

DRUGS (7)
  1. FORTEO [Suspect]
     Indication: OSTEOPOROSIS
     Dosage: 20 UG
     Dates: start: 20051201
  2. ELAVIL [Concomitant]
  3. THEOPHYLLINE [Concomitant]
  4. METHOTREXATE [Concomitant]
  5. FOLIC ACID [Concomitant]
  6. NEXIUM [Concomitant]
  7. ASA (ASPIRIN (ACETYLSALICYLIC ACID) [Concomitant]

REACTIONS (4)
  - CARDIAC MYXOMA [None]
  - INJECTION SITE PAIN [None]
  - PSEUDOMYXOMA PERITONEI [None]
  - TRANSIENT ISCHAEMIC ATTACK [None]
